FAERS Safety Report 4320624-X (Version None)
Quarter: 2004Q1

REPORT INFORMATION
  Report Type: 
  Country: None (occurrence: None)
  Receive Date: 20040317
  Receipt Date: 20040304
  Transmission Date: 20041129
  Serious: Yes (Hospitalization)
  Sender: FDA-Public Use
  Company Number: 200410032BBE

PATIENT
  Age: 42 Year
  Sex: Male
  Weight: 82 kg

DRUGS (3)
  1. FLEBOGAMMA [Suspect]
     Dosage: SEE IMAGE
     Route: 042
  2. FLEBOGAMMA [Suspect]
  3. AZITHROMYCIN [Concomitant]

REACTIONS (3)
  - RASH GENERALISED [None]
  - RASH PUSTULAR [None]
  - URTICARIA [None]
